FAERS Safety Report 12327402 (Version 1)
Quarter: 2016Q2

REPORT INFORMATION
  Report Type: Spontaneous
  Country: US (occurrence: None)
  Receive Date: 20160502
  Receipt Date: 20160502
  Transmission Date: 20160815
  Serious: Yes (Death)
  Sender: FDA-Public Use
  Company Number: None

PATIENT
  Age: 42 Year
  Sex: Male

DRUGS (2)
  1. LANTUS [Suspect]
     Active Substance: INSULIN GLARGINE
     Indication: CYSTIC FIBROSIS
     Route: 058
     Dates: start: 20150217
  2. NOVOLOG [Suspect]
     Active Substance: INSULIN ASPART
     Indication: CYSTIC FIBROSIS
     Dosage: TID AND HS SUBCUTANEOUS
     Route: 058
     Dates: start: 20150217

REACTIONS (1)
  - Death [None]
